FAERS Safety Report 5315432-7 (Version None)
Quarter: 2007Q2

REPORT INFORMATION
  Report Type: 
  Country: None (occurrence: None)
  Receive Date: 20070503
  Receipt Date: 20070424
  Transmission Date: 20071010
  Serious: Yes (Other)
  Sender: FDA-Public Use
  Company Number: PHEH2007US04083

PATIENT
  Age: 31 Year
  Sex: Female

DRUGS (3)
  1. ZELNORM [Suspect]
     Indication: CONSTIPATION
     Dosage: 6 MG, TID
     Route: 048
     Dates: start: 20060101, end: 20070404
  2. SYNTHROID [Concomitant]
     Indication: HYPOTHYROIDISM
  3. CONTRACEPTIVES NOS [Concomitant]

REACTIONS (9)
  - CARDIAC ABLATION [None]
  - DYSPNOEA [None]
  - ECHOCARDIOGRAM ABNORMAL [None]
  - HYPERHIDROSIS [None]
  - MITRAL VALVE PROLAPSE [None]
  - PALPITATIONS [None]
  - PRESYNCOPE [None]
  - SUPRAVENTRICULAR TACHYCARDIA [None]
  - TILT TABLE TEST [None]
